FAERS Safety Report 10882171 (Version 1)
Quarter: 2015Q1

REPORT INFORMATION
  Report Type: Spontaneous
  Country: US (occurrence: None)
  Receive Date: 20150225
  Receipt Date: 20150225
  Transmission Date: 20150721
  Serious: Yes (Other)
  Sender: FDA-Public Use
  Company Number: None

PATIENT
  Age: 71 Year
  Sex: Female
  Weight: 74.84 kg

DRUGS (8)
  1. SYNTHROID [Concomitant]
     Active Substance: LEVOTHYROXINE SODIUM
  2. MULTI VITAMIN [Concomitant]
     Active Substance: VITAMINS
  3. ACID REDUCER [Concomitant]
     Active Substance: CIMETIDINE\FAMOTIDINE\RANITIDINE HYDROCHLORIDE
  4. CALCIUM [Concomitant]
     Active Substance: CALCIUM
  5. ASPIRIN. [Concomitant]
     Active Substance: ASPIRIN
  6. PROLIA [Suspect]
     Active Substance: DENOSUMAB
     Indication: OSTEOPOROSIS
     Dosage: SHOT X 6 MOS
  7. CLORATHILAID [Concomitant]
  8. VITAMIN C [Concomitant]
     Active Substance: ASCORBIC ACID

REACTIONS (3)
  - Pain in extremity [None]
  - Urinary tract infection [None]
  - Cough [None]

NARRATIVE: CASE EVENT DATE: 20141115
